FAERS Safety Report 7241363-1 (Version None)
Quarter: 2011Q1

REPORT INFORMATION
  Report Type: 
  Country: None (occurrence: None)
  Receive Date: 20110120
  Receipt Date: 20110120
  Transmission Date: 20110831
  Serious: Yes (Life-Threatening, Hospitalization, Other)
  Sender: FDA-Public Use
  Company Number: None

PATIENT
  Age: 40 Year
  Sex: Female
  Weight: 49.8957 kg

DRUGS (1)
  1. XANAX [Suspect]
     Indication: ANXIETY
     Dosage: 2 MG 8 TIMES DAILY PO
     Route: 048

REACTIONS (6)
  - WITHDRAWAL SYNDROME [None]
  - THYROID MALFORMATION [None]
  - DRUG DEPENDENCE [None]
  - BLOOD PRESSURE INCREASED [None]
  - TREMOR [None]
  - DRUG EXPOSURE DURING PREGNANCY [None]
